FAERS Safety Report 10244874 (Version 2)
Quarter: 2014Q2

REPORT INFORMATION
  Report Type: Spontaneous
  Country: US (occurrence: US)
  Receive Date: 20140618
  Receipt Date: 20140618
  Transmission Date: 20141212
  Serious: No
  Sender: FDA-Public Use
  Company Number: US-GALDERMA-US14001139

PATIENT
  Age: 38 Year
  Sex: Male

DRUGS (3)
  1. MIRVASO (BRIMONIDINE) TOPICAL GEL, 0.33% [Suspect]
     Indication: ROSACEA
     Dosage: 0.33%
     Route: 061
     Dates: start: 20140306, end: 20140327
  2. MIRVASO (BRIMONIDINE) TOPICAL GEL, 0.33% [Suspect]
     Dosage: 0.33%
     Route: 061
     Dates: start: 20140328
  3. MINOCYCLINE [Concomitant]
     Indication: ROSACEA
     Dosage: 100 MG
     Route: 048
     Dates: start: 2009

REACTIONS (8)
  - Condition aggravated [Not Recovered/Not Resolved]
  - Feeling hot [Recovered/Resolved]
  - Insomnia [Recovered/Resolved]
  - Skin discomfort [Recovering/Resolving]
  - Flushing [Recovering/Resolving]
  - Skin warm [Not Recovered/Not Resolved]
  - Pain of skin [Recovering/Resolving]
  - Erythema [Recovering/Resolving]
